FAERS Safety Report 5594267-4 (Version None)
Quarter: 2008Q1

REPORT INFORMATION
  Report Type: 
  Country: None (occurrence: None)
  Receive Date: 20080117
  Receipt Date: 20071126
  Transmission Date: 20080703
  Serious: Yes (Other)
  Sender: FDA-Public Use
  Company Number: US-BAYER-200716282GDS

PATIENT
  Age: 60 Year
  Sex: Male

DRUGS (2)
  1. NEXAVAR [Suspect]
     Indication: NEOPLASM MALIGNANT
     Route: 048
     Dates: start: 20071001, end: 20071001
  2. NEXAVAR [Suspect]
     Route: 048

REACTIONS (4)
  - ERYTHEMA [None]
  - HYPERTENSION [None]
  - SKIN IRRITATION [None]
  - SWELLING FACE [None]
